FAERS Safety Report 13802316 (Version 5)
Quarter: 2018Q1

REPORT INFORMATION
  Report Type: Report from Study
  Country: DE (occurrence: DE)
  Receive Date: 20170728
  Receipt Date: 20180219
  Transmission Date: 20180508
  Serious: Yes (Other)
  Sender: FDA-Public Use
  Company Number: PHHY2016DE129737

PATIENT
  Age: 53 Year
  Sex: Female
  Weight: 67 kg

DRUGS (1)
  1. GILENYA [Suspect]
     Active Substance: FINGOLIMOD HYDROCHLORIDE
     Indication: MULTIPLE SCLEROSIS
     Dosage: 0.5 MG, QD
     Route: 048
     Dates: start: 20160310, end: 20170705

REACTIONS (6)
  - Basal cell carcinoma [Not Recovered/Not Resolved]
  - Acanthosis [Unknown]
  - Headache [Recovered/Resolved]
  - Skin cancer [Not Recovered/Not Resolved]
  - Skin discolouration [Not Recovered/Not Resolved]
  - Papilloma [Unknown]

NARRATIVE: CASE EVENT DATE: 201607
